FAERS Safety Report 4626148-4 (Version None)
Quarter: 2005Q1

REPORT INFORMATION
  Report Type: 
  Country: None (occurrence: None)
  Receive Date: 20050330
  Receipt Date: 20050309
  Transmission Date: 20050727
  Serious: No
  Sender: FDA-Public Use
  Company Number: USA050189247

PATIENT
  Age: 16 Year
  Sex: Female

DRUGS (2)
  1. STRATTERA [Suspect]
  2. MINOCYCLINE HCL [Concomitant]

REACTIONS (5)
  - ABDOMINAL DISTENSION [None]
  - DEPRESSION [None]
  - FATIGUE [None]
  - HEPATIC ENZYME INCREASED [None]
  - NAUSEA [None]
